FAERS Safety Report 5838308-5 (Version None)
Quarter: 2008Q3

REPORT INFORMATION
  Report Type: 
  Country: None (occurrence: None)
  Receive Date: 20080808
  Receipt Date: 20080729
  Transmission Date: 20090109
  Serious: Yes (Hospitalization)
  Sender: FDA-Public Use
  Company Number: JP-AMGEN-US295559

PATIENT
  Sex: Male
  Weight: 21 kg

DRUGS (20)
  1. ENBREL [Suspect]
     Indication: JUVENILE ARTHRITIS
     Route: 058
     Dates: start: 20070607, end: 20080613
  2. RHEUMATREX [Concomitant]
     Indication: JUVENILE ARTHRITIS
     Route: 048
     Dates: start: 20070606, end: 20070625
  3. RHEUMATREX [Concomitant]
     Route: 048
     Dates: start: 20070626, end: 20070703
  4. RHEUMATREX [Concomitant]
     Route: 048
     Dates: start: 20070704, end: 20070727
  5. RHEUMATREX [Concomitant]
     Route: 048
     Dates: start: 20070728, end: 20070816
  6. RHEUMATREX [Concomitant]
     Route: 048
     Dates: start: 20070817, end: 20070827
  7. RHEUMATREX [Concomitant]
     Route: 048
     Dates: start: 20070828, end: 20071120
  8. RHEUMATREX [Concomitant]
     Route: 048
     Dates: start: 20071121
  9. NAIXAN [Concomitant]
     Indication: JUVENILE ARTHRITIS
     Route: 048
     Dates: start: 20070606, end: 20070713
  10. NAIXAN [Concomitant]
     Route: 048
     Dates: start: 20070714, end: 20080310
  11. NAIXAN [Concomitant]
     Route: 048
     Dates: start: 20080311, end: 20080403
  12. NAIXAN [Concomitant]
     Route: 048
     Dates: start: 20080404, end: 20080612
  13. NAIXAN [Concomitant]
     Route: 048
     Dates: start: 20080613
  14. PREDNISOLONE [Concomitant]
     Indication: JUVENILE ARTHRITIS
     Route: 048
     Dates: start: 20070605, end: 20070613
  15. PREDNISOLONE [Concomitant]
     Route: 048
     Dates: start: 20070614, end: 20070619
  16. PREDNISOLONE [Concomitant]
     Route: 048
     Dates: start: 20070620, end: 20070701
  17. PREDNISOLONE [Concomitant]
     Route: 048
     Dates: start: 20070702, end: 20070727
  18. PREDNISOLONE [Concomitant]
     Route: 048
     Dates: start: 20070728, end: 20071008
  19. PREDNISOLONE [Concomitant]
     Route: 048
     Dates: start: 20071009, end: 20071105
  20. PROGRAF [Concomitant]
     Indication: JUVENILE ARTHRITIS
     Route: 048
     Dates: start: 20070606, end: 20070608

REACTIONS (2)
  - HYPOALBUMINAEMIA [None]
  - HYPOPROTEINAEMIA [None]
